FAERS Safety Report 8707654 (Version 2)
Quarter: 2013Q4

REPORT INFORMATION
  Report Type: Spontaneous
  Country: US (occurrence: US)
  Receive Date: 20120806
  Receipt Date: 20131101
  Transmission Date: 20140711
  Serious: No
  Sender: FDA-Public Use
  Company Number: US-009507513-1207USA012182

PATIENT
  Age: 59 Year
  Sex: Male

DRUGS (4)
  1. ASMANEX TWISTHALER [Suspect]
  2. PULMICORT [Suspect]
     Route: 055
  3. FORADIL [Suspect]
     Route: 055
  4. SPIRIVA [Concomitant]

REACTIONS (1)
  - Bronchopulmonary aspergillosis [Unknown]
